FAERS Safety Report 14837010 (Version 1)
Quarter: 2018Q2

REPORT INFORMATION
  Report Type: Spontaneous
  Country: FR (occurrence: FR)
  Receive Date: 20180502
  Receipt Date: 20180502
  Transmission Date: 20180711
  Serious: Yes (Other)
  Sender: FDA-Public Use
  Company Number: FR-MERCK KGAA-2046989

PATIENT
  Age: 60 Year
  Sex: Female

DRUGS (1)
  1. NOVOTHYROX [Suspect]
     Active Substance: LEVOTHYROXINE SODIUM
     Indication: PRODUCT USED FOR UNKNOWN INDICATION

REACTIONS (33)
  - Insomnia [None]
  - Negative thoughts [None]
  - High density lipoprotein increased [None]
  - Creatinine urine decreased [Recovered/Resolved]
  - Morbid thoughts [None]
  - Migraine [None]
  - Abdominal pain [None]
  - Decreased interest [None]
  - Alanine aminotransferase increased [Recovered/Resolved]
  - Neoplasm malignant [None]
  - Dizziness [None]
  - Malaise [None]
  - Phobia of driving [None]
  - Blood cholesterol increased [Recovering/Resolving]
  - C-reactive protein increased [None]
  - Blood alkaline phosphatase increased [Recovered/Resolved]
  - Affective disorder [None]
  - Myalgia [None]
  - Crying [None]
  - Syncope [None]
  - Aspartate aminotransferase increased [Recovered/Resolved]
  - Dyslipidaemia [None]
  - Alopecia [None]
  - Fear of disease [None]
  - Feeling abnormal [None]
  - Abdominal pain upper [None]
  - Tremor [None]
  - Gamma-glutamyltransferase increased [None]
  - Fatigue [None]
  - Aggression [None]
  - Impatience [None]
  - Depressed mood [None]
  - Blood triglycerides increased [None]

NARRATIVE: CASE EVENT DATE: 20170420
